FAERS Safety Report 24307065 (Version 1)
Quarter: 2024Q3

REPORT INFORMATION
  Report Type: Spontaneous
  Country: US (occurrence: None)
  Receive Date: 20240910
  Receipt Date: 20240910
  Transmission Date: 20241017
  Serious: Yes (Hospitalization)
  Sender: Public
  Company Number: None

PATIENT
  Sex: Female

DRUGS (3)
  1. VIGABATRIN [Suspect]
     Active Substance: VIGABATRIN
     Indication: Epilepsy
     Route: 048
     Dates: start: 20240309
  2. DIAZEPAM [Concomitant]
     Active Substance: DIAZEPAM
  3. IRON [Concomitant]
     Active Substance: IRON

REACTIONS (1)
  - Hospitalisation [None]
